FAERS Safety Report 6121684-6 (Version None)
Quarter: 2009Q1

REPORT INFORMATION
  Report Type: 
  Country: None (occurrence: None)
  Receive Date: 20090313
  Receipt Date: 20090226
  Transmission Date: 20090719
  Serious: No
  Sender: FDA-Public Use
  Company Number: 8037619

PATIENT
  Age: 6 Month
  Sex: Female

DRUGS (5)
  1. KEPPRA [Suspect]
     Dosage: 500 MG 2/D TRP
     Route: 064
     Dates: start: 20080105, end: 20080111
  2. KEPPRA [Suspect]
     Dosage: 1000 MG /D TRP
     Route: 064
     Dates: start: 20080112
  3. VALTREX [Concomitant]
  4. IRON [Concomitant]
  5. VITAMIN TAB [Concomitant]

REACTIONS (4)
  - CONGENITAL ACROCHORDON [None]
  - CONGENITAL NAEVUS [None]
  - DRUG EXPOSURE DURING PREGNANCY [None]
  - NAEVUS FLAMMEUS [None]
